FAERS Safety Report 9187804 (Version 1)
Quarter: 2013Q1

REPORT INFORMATION
  Report Type: Spontaneous
  Country: US (occurrence: US)
  Receive Date: 20130325
  Receipt Date: 20130325
  Transmission Date: 20140127
  Serious: No
  Sender: FDA-Public Use
  Company Number: US-MYLANLABS-2012S1009137

PATIENT
  Age: 18 Year
  Sex: Female
  Weight: 68.04 kg

DRUGS (1)
  1. FENTANYL TRANSDERMAL SYSTEM [Suspect]
     Indication: CYSTITIS INTERSTITIAL
     Dosage: CHANGES Q. 72 HOURS.
     Route: 062
     Dates: start: 20120427, end: 20120501

REACTIONS (3)
  - Application site irritation [Recovering/Resolving]
  - Application site pain [Recovering/Resolving]
  - Application site erythema [Recovering/Resolving]
